FAERS Safety Report 9332478 (Version 1)
Quarter: 2013Q2

REPORT INFORMATION
  Report Type: Spontaneous
  Country: GB (occurrence: GB)
  Receive Date: 20130606
  Receipt Date: 20130606
  Transmission Date: 20140414
  Serious: Yes (Other)
  Sender: FDA-Public Use
  Company Number: GB-JNJFOC-20130516250

PATIENT
  Age: 28 Year
  Sex: Female
  Weight: 63.5 kg

DRUGS (1)
  1. MICRONOR [Suspect]
     Indication: MENSTRUAL DISORDER
     Route: 048
     Dates: start: 20130414, end: 20130509

REACTIONS (6)
  - Breast pain [Recovering/Resolving]
  - Breast tenderness [Recovering/Resolving]
  - Menstruation irregular [Not Recovered/Not Resolved]
  - Depressed mood [Recovering/Resolving]
  - Menorrhagia [Not Recovered/Not Resolved]
  - Off label use [Unknown]
